FAERS Safety Report 14309196 (Version 1)
Quarter: 2017Q4

REPORT INFORMATION
  Report Type: Spontaneous
  Country: US (occurrence: US)
  Receive Date: 20171220
  Receipt Date: 20171220
  Transmission Date: 20180321
  Serious: Yes (Life-Threatening, Hospitalization, Other)
  Sender: FDA-Public Use
  Company Number: None

PATIENT
  Age: 63 Year
  Sex: Male
  Weight: 81.5 kg

DRUGS (16)
  1. FAMOTIDINE. [Concomitant]
     Active Substance: FAMOTIDINE
  2. PREDNISONE. [Concomitant]
     Active Substance: PREDNISONE
  3. PEGASPARGASE [Suspect]
     Active Substance: PEGASPARGASE
     Indication: ACUTE LYMPHOCYTIC LEUKAEMIA
     Dosage: 2000 IU ONCE (ON DAY 15) IV INFUSION
     Route: 042
     Dates: start: 20170510, end: 20170626
  4. PROCHLORPERAZINE. [Concomitant]
     Active Substance: PROCHLORPERAZINE
  5. ACETAMINOPHEN. [Concomitant]
     Active Substance: ACETAMINOPHEN
  6. TRAMADOL. [Concomitant]
     Active Substance: TRAMADOL
  7. VINCRISTINE [Concomitant]
     Active Substance: VINCRISTINE
  8. DEXAMETHASONE. [Concomitant]
     Active Substance: DEXAMETHASONE
  9. DIPHENHYDRAMINE. [Concomitant]
     Active Substance: DIPHENHYDRAMINE
  10. HYDROCORTISONE SODIUM SUCC [Concomitant]
  11. PEGASPARGASE [Suspect]
     Active Substance: PEGASPARGASE
     Indication: PHILADELPHIA CHROMOSOME NEGATIVE
     Dosage: 2000 IU ONCE (ON DAY 15) IV INFUSION
     Route: 042
     Dates: start: 20170510, end: 20170626
  12. ACYCLOVIR. [Concomitant]
     Active Substance: ACYCLOVIR
  13. METHOTREXATE SODIUM. [Concomitant]
     Active Substance: METHOTREXATE SODIUM
  14. ONDANSETRON [Concomitant]
     Active Substance: ONDANSETRON
  15. MERCAPTOPURINE. [Concomitant]
     Active Substance: MERCAPTOPURINE
  16. RIVAROXABAN [Concomitant]
     Active Substance: RIVAROXABAN

REACTIONS (2)
  - Anaphylactic reaction [None]
  - Infusion related reaction [None]

NARRATIVE: CASE EVENT DATE: 20170626
